FAERS Safety Report 8011183-9 (Version None)
Quarter: 2011Q4

REPORT INFORMATION
  Report Type: 
  Country: None (occurrence: None)
  Receive Date: 20111228
  Receipt Date: 20111219
  Transmission Date: 20120403
  Serious: Yes (Other)
  Sender: FDA-Public Use
  Company Number: US-BAYER-2011-031376

PATIENT
  Age: 40 Year
  Sex: Female
  Weight: 73 kg

DRUGS (4)
  1. RANITIDINE [Concomitant]
  2. MAGNESIUM HYDROXIDE TAB [Concomitant]
  3. YAZ [Suspect]
     Indication: CONTRACEPTION
     Dosage: UNK
     Dates: start: 20061001, end: 20091201
  4. MULTI-VITAMIN [Concomitant]

REACTIONS (7)
  - NAUSEA [None]
  - CHOLECYSTITIS CHRONIC [None]
  - HYDROCHOLECYSTIS [None]
  - CHOLELITHIASIS [None]
  - ABDOMINAL PAIN [None]
  - PAIN [None]
  - MELAENA [None]
